FAERS Safety Report 7318354-5 (Version None)
Quarter: 2011Q1

REPORT INFORMATION
  Report Type: 
  Country: None (occurrence: None)
  Receive Date: 20110217
  Receipt Date: 20110217
  Transmission Date: 20110831
  Serious: Yes (Hospitalization)
  Sender: FDA-Public Use
  Company Number: None

PATIENT
  Age: 28 Year
  Sex: Female
  Weight: 62 kg

DRUGS (6)
  1. ABILIFY [Concomitant]
  2. METHYLPHENIDATE (RITALI [Concomitant]
  3. CLONAZEPAM [Concomitant]
  4. NUVIGIL [Suspect]
     Dosage: 150MG DAILY ORAL
     Route: 048
     Dates: start: 20101205
  5. ESZOPICLONE (LUNESTA) [Concomitant]
  6. LAMICTAL [Concomitant]

REACTIONS (1)
  - ERYTHEMA MULTIFORME [None]
